FAERS Safety Report 17293281 (Version 1)
Quarter: 2020Q1

REPORT INFORMATION
  Report Type: Report from Study
  Country: US (occurrence: US)
  Receive Date: 20200121
  Receipt Date: 20200121
  Transmission Date: 20200409
  Serious: Yes (Other)
  Sender: FDA-Public Use
  Company Number: US-ROCHE-2525278

PATIENT
  Sex: Female

DRUGS (2)
  1. ACTEMRA [Suspect]
     Active Substance: TOCILIZUMAB
     Indication: RHEUMATOID ARTHRITIS
     Route: 042
     Dates: start: 201910
  2. RITUXAN [Suspect]
     Active Substance: RITUXIMAB
     Indication: RHEUMATOID ARTHRITIS
     Dosage: LOWER DOSE
     Route: 041
     Dates: start: 2018, end: 201904

REACTIONS (4)
  - Vasculitis [Recovering/Resolving]
  - Abdominal discomfort [Recovered/Resolved]
  - Rash [Recovering/Resolving]
  - Diarrhoea [Recovered/Resolved]
